FAERS Safety Report 19352973 (Version 1)
Quarter: 2021Q2

REPORT INFORMATION
  Report Type: Spontaneous
  Country: US (occurrence: US)
  Receive Date: 20210601
  Receipt Date: 20210601
  Transmission Date: 20210717
  Serious: Yes (Hospitalization)
  Sender: FDA-Public Use
  Company Number: US-LUNDBECK-DKLU3033191

PATIENT
  Age: 3 Month
  Sex: Female
  Weight: 6.69 kg

DRUGS (14)
  1. VIMPAT [Suspect]
     Active Substance: LACOSAMIDE
     Indication: PRODUCT USED FOR UNKNOWN INDICATION
     Dosage: 10MG/ML SOLUTION, TAPPERING
     Route: 048
  2. PHENOBARBITAL. [Concomitant]
     Active Substance: PHENOBARBITAL
     Indication: SEIZURE
     Dosage: ELIXIR
     Route: 048
  3. SABRIL [Suspect]
     Active Substance: VIGABATRIN
     Indication: EPILEPSY
     Route: 048
     Dates: start: 20210423
  4. SABRIL [Suspect]
     Active Substance: VIGABATRIN
     Route: 048
  5. VIMPAT [Suspect]
     Active Substance: LACOSAMIDE
     Route: 048
  6. PHENOBARBITAL. [Concomitant]
     Active Substance: PHENOBARBITAL
     Route: 048
  7. PHENOBARBITAL. [Concomitant]
     Active Substance: PHENOBARBITAL
     Route: 048
  8. SENNA [Concomitant]
     Active Substance: SENNA LEAF\SENNOSIDES\SENNOSIDES A AND B
     Indication: PRODUCT USED FOR UNKNOWN INDICATION
     Route: 048
  9. DIASTAT [Concomitant]
     Active Substance: DIAZEPAM
     Indication: SEIZURE
     Route: 054
  10. PHENOBARBITAL. [Concomitant]
     Active Substance: PHENOBARBITAL
     Route: 048
  11. SABRIL [Suspect]
     Active Substance: VIGABATRIN
     Indication: INFANTILE SPASMS
     Route: 048
     Dates: start: 20210507
  12. VIMPAT [Suspect]
     Active Substance: LACOSAMIDE
     Route: 048
  13. SABRIL [Suspect]
     Active Substance: VIGABATRIN
     Route: 048
     Dates: start: 20210509
  14. BACITRACIN. [Concomitant]
     Active Substance: BACITRACIN
     Indication: PRODUCT USED FOR UNKNOWN INDICATION
     Dosage: AFFECTED AREA TWICE A DAY AS NEEDED FOR AFFECTED AREA (WHERE EEG LEADS WERE)
     Route: 062

REACTIONS (3)
  - Vomiting [Unknown]
  - Condition aggravated [Unknown]
  - Respiratory disorder [Unknown]
